FAERS Safety Report 21353534 (Version 1)
Quarter: 2022Q3

REPORT INFORMATION
  Report Type: Report from Study
  Country: CN (occurrence: CN)
  Receive Date: 20220920
  Receipt Date: 20220920
  Transmission Date: 20221026
  Serious: Yes (Other)
  Sender: FDA-Public Use
  Company Number: CN-SA-2022SA385131

PATIENT

DRUGS (4)
  1. OXALIPLATIN [Suspect]
     Active Substance: OXALIPLATIN
     Indication: Hodgkin^s disease
     Dosage: 100MG/M2, IV, DAY 1 AND DAY 15
     Route: 042
  2. GEMCITABINE [Concomitant]
     Active Substance: GEMCITABINE
     Indication: Hodgkin^s disease
     Dosage: 1000 MG/M2, IV, DAY 1 AND DAY 15
     Route: 042
  3. CAMRELIZUMAB [Concomitant]
     Active Substance: CAMRELIZUMAB
     Indication: Hodgkin^s disease
     Dosage: 2 CYCLES (28-DAY CYCLE) OF CAM (IV, DAY 1 AND DAY 15)
     Route: 042
  4. CAMRELIZUMAB [Concomitant]
     Active Substance: CAMRELIZUMAB
     Dosage: 2 CYCLES,200 MG IV,(ONCE EVERY TWO WEEKS)
     Route: 042

REACTIONS (1)
  - Hypertriglyceridaemia [Unknown]
